FAERS Safety Report 23659265 (Version 2)
Quarter: 2024Q1

REPORT INFORMATION
  Report Type: Spontaneous
  Country: FR (occurrence: FR)
  Receive Date: 20240321
  Receipt Date: 20240326
  Transmission Date: 20240409
  Serious: Yes (Other)
  Sender: FDA-Public Use
  Company Number: FR-SANDOZ-SDZ2024FR029997

PATIENT
  Age: 72 Year
  Sex: Female

DRUGS (2)
  1. DEFERASIROX [Suspect]
     Active Substance: DEFERASIROX
     Indication: Product used for unknown indication
     Dosage: 360 MG
     Route: 065
  2. EXJADE [Concomitant]
     Active Substance: DEFERASIROX
     Indication: Product used for unknown indication
     Dosage: UNK
     Route: 065

REACTIONS (1)
  - Epilepsy [Unknown]
